FAERS Safety Report 11091724 (Version 1)
Quarter: 2015Q2

REPORT INFORMATION
  Report Type: Spontaneous
  Country: US (occurrence: US)
  Receive Date: 20150505
  Receipt Date: 20150505
  Transmission Date: 20150821
  Serious: No
  Sender: FDA-Public Use
  Company Number: US-GLAXOSMITHKLINE-US2015057724

PATIENT
  Sex: Female

DRUGS (1)
  1. SUMATRIPTAN SUCCINATE NASAL SPRAY [Suspect]
     Active Substance: SUMATRIPTAN SUCCINATE

REACTIONS (2)
  - Idiosyncratic drug reaction [Unknown]
  - Drug hypersensitivity [Unknown]

NARRATIVE: CASE EVENT DATE: 2015
